FAERS Safety Report 24271272 (Version 4)
Quarter: 2025Q2

REPORT INFORMATION
  Report Type: Report from Study
  Country: US (occurrence: US)
  Receive Date: 20240901
  Receipt Date: 20250506
  Transmission Date: 20250716
  Serious: No
  Sender: AMGEN
  Company Number: US-AMGEN-USASP2024172228

PATIENT
  Age: 50 Year
  Sex: Male

DRUGS (5)
  1. KRYSTEXXA [Suspect]
     Active Substance: PEGLOTICASE
     Indication: Gouty tophus
     Dosage: UNK, Q2WK (EVERY 2 WEEKS)
     Route: 042
     Dates: start: 20240809
  2. KRYSTEXXA [Suspect]
     Active Substance: PEGLOTICASE
     Dosage: UNK, Q2WK (EVERY 2 WEEKS), FRIDAY
     Route: 042
     Dates: start: 2024
  3. KRYSTEXXA [Suspect]
     Active Substance: PEGLOTICASE
     Dosage: UNK, Q2WK (EVERY 2 WEEKS)
     Route: 042
     Dates: start: 20241114
  4. KRYSTEXXA [Suspect]
     Active Substance: PEGLOTICASE
     Dosage: UNK, Q2WK (EVERY 2 WEEKS)
     Route: 042
     Dates: start: 20241206
  5. METHOTREXATE [Suspect]
     Active Substance: METHOTREXATE
     Indication: Gouty tophus
     Route: 048

REACTIONS (2)
  - Gout [Unknown]
  - Blood uric acid abnormal [Recovering/Resolving]

NARRATIVE: CASE EVENT DATE: 20240101
